FAERS Safety Report 12237551 (Version 1)
Quarter: 2016Q2

REPORT INFORMATION
  Report Type: Spontaneous
  Country: US (occurrence: None)
  Receive Date: 20160404
  Receipt Date: 20160404
  Transmission Date: 20160815
  Serious: No
  Sender: FDA-Public Use
  Company Number: None

PATIENT
  Age: 48 Year
  Sex: Female
  Weight: 72.58 kg

DRUGS (7)
  1. CRANBERRY EXTRACT [Concomitant]
     Active Substance: CRANBERRY JUICE
  2. ARNICARE [Suspect]
     Active Substance: ARNICA MONTANA
     Indication: CONTUSION
     Dosage: AT BEDTIME APPLIED TO A SURFACE, USUALLY THE SKIN
     Route: 061
     Dates: start: 20160331, end: 20160401
  3. PROBIOTIC [Concomitant]
     Active Substance: PROBIOTICS NOS
  4. ARNICARE [Suspect]
     Active Substance: ARNICA MONTANA
     Indication: PERIPHERAL SWELLING
     Dosage: AT BEDTIME APPLIED TO A SURFACE, USUALLY THE SKIN
     Route: 061
     Dates: start: 20160331, end: 20160401
  5. VITAMINE A [Concomitant]
     Active Substance: RETINOL
  6. POTASSIUM [Concomitant]
     Active Substance: POTASSIUM
  7. ALEGRA ALLERGY [Concomitant]

REACTIONS (14)
  - Nausea [None]
  - Hyperhidrosis [None]
  - Anxiety [None]
  - Blood glucose decreased [None]
  - Middle insomnia [None]
  - Insomnia [None]
  - Pain in extremity [None]
  - Night sweats [None]
  - Loss of consciousness [None]
  - Chills [None]
  - Dizziness [None]
  - Fall [None]
  - Dry mouth [None]
  - Asthenia [None]

NARRATIVE: CASE EVENT DATE: 20160331
